FAERS Safety Report 5114530-0 (Version None)
Quarter: 2006Q3

REPORT INFORMATION
  Report Type: 
  Country: None (occurrence: None)
  Receive Date: 20060926
  Receipt Date: 20060914
  Transmission Date: 20061208
  Serious: Yes (Hospitalization)
  Sender: FDA-Public Use
  Company Number: PHFR2006GB02815

PATIENT
  Sex: Female

DRUGS (2)
  1. DESFERAL [Suspect]
     Indication: THALASSAEMIA BETA
  2. DEFERIPRONE [Concomitant]
     Indication: CHELATION THERAPY

REACTIONS (2)
  - HYPOGLYCAEMIA [None]
  - METABOLIC ACIDOSIS [None]
